FAERS Safety Report 24572593 (Version 2)
Quarter: 2025Q1

REPORT INFORMATION
  Report Type: Spontaneous
  Country: US (occurrence: US)
  Receive Date: 20241101
  Receipt Date: 20250103
  Transmission Date: 20250409
  Serious: Yes (Other)
  Sender: NOVARTIS
  Company Number: US-002147023-NVSC2024US209178

PATIENT
  Age: 50 Year
  Sex: Female

DRUGS (6)
  1. COSENTYX [Suspect]
     Active Substance: SECUKINUMAB
     Indication: Psoriasis
     Dosage: 300 MG, Q4W
     Route: 065
  2. COSENTYX [Suspect]
     Active Substance: SECUKINUMAB
     Indication: Psoriatic arthropathy
     Route: 058
     Dates: start: 202310, end: 202410
  3. COSENTYX [Suspect]
     Active Substance: SECUKINUMAB
     Indication: Hidradenitis
  4. HUMIRA [Suspect]
     Active Substance: ADALIMUMAB
     Indication: Psoriasis
     Route: 065
  5. HUMIRA [Suspect]
     Active Substance: ADALIMUMAB
     Indication: Psoriatic arthropathy
  6. HUMIRA [Suspect]
     Active Substance: ADALIMUMAB
     Indication: Hidradenitis

REACTIONS (4)
  - Pyoderma gangrenosum [Unknown]
  - Hidradenitis [Unknown]
  - Condition aggravated [Unknown]
  - Drug ineffective [Unknown]
